FAERS Safety Report 5022384-6 (Version None)
Quarter: 2006Q2

REPORT INFORMATION
  Report Type: 
  Country: None (occurrence: None)
  Receive Date: 20060502
  Receipt Date: 20050613
  Transmission Date: 20061013
  Serious: Yes (Hospitalization, Other)
  Sender: FDA-Public Use
  Company Number: PHEH2005US06761

PATIENT
  Age: 74 Year
  Sex: Female
  Weight: 101.1 kg

DRUGS (2)
  1. LOTREL [Suspect]
     Dosage: 10 MG AML/20 MG BEN, QD, ORAL
     Route: 048
     Dates: start: 20050316, end: 20050402
  2. ACTOS /USA/ (PIOGLITAZONE, PIOGLITAZONE HYDROCHLORIDE) [Concomitant]

REACTIONS (1)
  - ANGIONEUROTIC OEDEMA [None]
